FAERS Safety Report 4909047-X (Version None)
Quarter: 2006Q1

REPORT INFORMATION
  Report Type: 
  Country: None (occurrence: None)
  Receive Date: 20060208
  Receipt Date: 20060208
  Transmission Date: 20060701
  Serious: No
  Sender: FDA-Public Use
  Company Number: None

PATIENT
  Age: 30 Year
  Sex: Female
  Weight: 87.9978 kg

DRUGS (3)
  1. ZICAM [Suspect]
     Indication: HYPERSENSITIVITY
     Dosage: ONE SQUIRT IN EACH NOSTRIL 2X NASAL
     Route: 045
     Dates: start: 20020415, end: 20020415
  2. ZICAM [Suspect]
     Indication: NASOPHARYNGITIS
     Dosage: ONE SQUIRT IN EACH NOSTRIL 2X NASAL
     Route: 045
     Dates: start: 20020415, end: 20020415
  3. ZICAM [Suspect]
     Indication: PREGNANCY
     Dosage: ONE SQUIRT IN EACH NOSTRIL 2X NASAL
     Route: 045
     Dates: start: 20020415, end: 20020415

REACTIONS (1)
  - ANOSMIA [None]
